FAERS Safety Report 8737849 (Version 4)
Quarter: 2018Q1

REPORT INFORMATION
  Report Type: Spontaneous
  Country: US (occurrence: US)
  Receive Date: 20120822
  Receipt Date: 20180105
  Transmission Date: 20180509
  Serious: Yes (Hospitalization, Other)
  Sender: FDA-Public Use
  Company Number: US-009507513-1208USA003687

PATIENT
  Sex: Female
  Weight: 94.33 kg

DRUGS (2)
  1. FOSAMAX [Suspect]
     Active Substance: ALENDRONATE SODIUM
     Indication: PRODUCT USED FOR UNKNOWN INDICATION
     Dosage: UNK
     Route: 048
     Dates: start: 2003, end: 2010
  2. ALENDRONATE SODIUM. [Suspect]
     Active Substance: ALENDRONATE SODIUM
     Indication: PRODUCT USED FOR UNKNOWN INDICATION
     Dosage: UNK
     Route: 048
     Dates: start: 2003, end: 2010

REACTIONS (12)
  - Urinary tract infection [Unknown]
  - Atrial fibrillation [Unknown]
  - Femur fracture [Recovered/Resolved]
  - Jaw disorder [Unknown]
  - Atrial flutter [Recovered/Resolved]
  - Acute kidney injury [Recovering/Resolving]
  - Cholecystectomy [Unknown]
  - Hip arthroplasty [Unknown]
  - Anaemia of chronic disease [Unknown]
  - Hyponatraemia [Recovering/Resolving]
  - Hepatitis C [Unknown]
  - Hypertension [Unknown]

NARRATIVE: CASE EVENT DATE: 2003
